FAERS Safety Report 7312765-X (Version None)
Quarter: 2011Q1

REPORT INFORMATION
  Report Type: 
  Country: None (occurrence: None)
  Receive Date: 20110224
  Receipt Date: 20110214
  Transmission Date: 20110831
  Serious: Yes (Hospitalization)
  Sender: FDA-Public Use
  Company Number: US-WATSON-2011-01859

PATIENT
  Age: 49 Year
  Sex: Female
  Weight: 73.923 kg

DRUGS (9)
  1. UNKNOWN [Suspect]
     Indication: OSTEOARTHRITIS
     Dosage: EVERY 8 WEEKS
     Route: 042
     Dates: start: 20091201, end: 20100518
  2. PHENERGAN HCL [Suspect]
     Indication: PRODUCT USED FOR UNKNOWN INDICATION
     Dosage: UNK
     Route: 048
     Dates: start: 20100525, end: 20100525
  3. LEXAPRO [Suspect]
     Indication: DEPRESSION
     Dosage: 10 MG 1X/DAY
     Route: 048
     Dates: start: 20100525, end: 20100525
  4. LOTREL [Suspect]
     Indication: PRODUCT USED FOR UNKNOWN INDICATION
     Dosage: 10/40
     Route: 048
     Dates: start: 20040101
  5. THERA-GESIC [Concomitant]
     Indication: PRODUCT USED FOR UNKNOWN INDICATION
     Dosage: UNK
     Dates: start: 20100414
  6. PAMELOR [Suspect]
     Indication: HEADACHE
     Dosage: 25 MG, 1X/DAY
     Route: 048
     Dates: start: 20100525, end: 20100525
  7. AMRIX [Suspect]
     Indication: PRODUCT USED FOR UNKNOWN INDICATION
     Dosage: UNK
     Route: 048
     Dates: start: 20100525, end: 20100525
  8. FIORICET [Suspect]
     Indication: PRODUCT USED FOR UNKNOWN INDICATION
     Dosage: 25 MG, SINGLE
     Route: 048
     Dates: start: 20100525, end: 20100525
  9. HYDROCHLOROTHIAZIDE [Concomitant]
     Dosage: UNK
     Route: 065
     Dates: start: 20050101

REACTIONS (13)
  - OVERDOSE [None]
  - VOMITING [None]
  - HYPOXIA [None]
  - CONVULSION [None]
  - RESPIRATORY FAILURE [None]
  - HYPOVENTILATION [None]
  - COMA [None]
  - ARRHYTHMIA [None]
  - CARDIAC ARREST [None]
  - SUICIDE ATTEMPT [None]
  - HYPOTENSION [None]
  - CONFUSIONAL STATE [None]
  - RHABDOMYOLYSIS [None]
